FAERS Safety Report 7293912-5 (Version None)
Quarter: 2011Q1

REPORT INFORMATION
  Report Type: 
  Country: None (occurrence: None)
  Receive Date: 20110204
  Receipt Date: 20110126
  Transmission Date: 20110831
  Serious: Yes (Other)
  Sender: FDA-Public Use
  Company Number: DKLU1067898

PATIENT
  Age: 15 Month
  Sex: Female

DRUGS (2)
  1. ZANTAC [Concomitant]
  2. SABRIL [Suspect]
     Indication: INFANTILE SPASMS

REACTIONS (1)
  - INCREASED UPPER AIRWAY SECRETION [None]
